FAERS Safety Report 9231185 (Version 1)
Quarter: 2013Q2

REPORT INFORMATION
  Report Type: Spontaneous
  Country: TR (occurrence: TR)
  Receive Date: 20130415
  Receipt Date: 20130415
  Transmission Date: 20140414
  Serious: Yes (Other)
  Sender: FDA-Public Use
  Company Number: PHHY2013TR034975

PATIENT
  Age: 43 Year
  Sex: Female

DRUGS (3)
  1. ESCITALOPRAM [Suspect]
     Dosage: 20 MG, DAILY
  2. ISONIAZID [Interacting]
     Indication: TUBERCULIN TEST POSITIVE
  3. CORTICOSTEROIDS [Concomitant]
     Indication: TAKAYASU^S ARTERITIS

REACTIONS (9)
  - Serotonin syndrome [Recovered/Resolved]
  - Pyrexia [Recovered/Resolved]
  - Confusional state [Recovered/Resolved]
  - Muscle rigidity [Recovered/Resolved]
  - Clonus [Recovered/Resolved]
  - Hoffmann^s sign [Recovered/Resolved]
  - Hyperreflexia [Recovered/Resolved]
  - Muscle contractions involuntary [Recovered/Resolved]
  - Drug interaction [Unknown]
